FAERS Safety Report 8086778-7 (Version None)
Quarter: 2012Q1

REPORT INFORMATION
  Report Type: 
  Country: None (occurrence: None)
  Receive Date: 20120128
  Receipt Date: 20110517
  Transmission Date: 20120608
  Serious: No
  Sender: FDA-Public Use
  Company Number: US-ABBOTT-11P-163-0726828-00

PATIENT
  Sex: Male
  Weight: 98.064 kg

DRUGS (13)
  1. HUMIRA [Suspect]
     Dates: start: 20101101, end: 20110401
  2. UNKNOWN STEROID [Suspect]
     Indication: BRONCHITIS
     Dates: start: 20101001
  3. MULTI-VITAMIN [Concomitant]
     Indication: VITAMIN SUPPLEMENTATION
  4. PROTANDEM [Concomitant]
     Indication: UNEVALUABLE EVENT
  5. GLUCOSAMINE [Concomitant]
     Indication: PRODUCT USED FOR UNKNOWN INDICATION
  6. HUMIRA [Suspect]
     Dates: start: 20110516
  7. LEVOTHYROXINE SODIUM [Concomitant]
     Indication: HYPOTHYROIDISM
     Dates: start: 19810101
  8. HUMIRA [Suspect]
     Indication: PSORIATIC ARTHROPATHY
     Dates: start: 20100601, end: 20101001
  9. LEVOTHYROXINE SODIUM [Concomitant]
     Dates: start: 20100501
  10. HUMIRA [Suspect]
     Dates: start: 20110401
  11. OXYCONTIN [Concomitant]
     Indication: ARTHRALGIA
  12. PROTEIN POWDER [Concomitant]
     Indication: MEDICAL DIET
  13. PAXIL [Concomitant]
     Indication: DEPRESSION

REACTIONS (6)
  - DERMAL CYST [None]
  - INSOMNIA [None]
  - ANAL FISSURE [None]
  - WEIGHT INCREASED [None]
  - BRONCHITIS [None]
  - ANXIETY [None]
